FAERS Safety Report 18887924 (Version 1)
Quarter: 2021Q1

REPORT INFORMATION
  Report Type: Report from Study
  Country: ES (occurrence: ES)
  Receive Date: 20210213
  Receipt Date: 20210213
  Transmission Date: 20210420
  Serious: Yes (Congenital Anomaly, Other)
  Sender: FDA-Public Use
  Company Number: ES-VISTAPHARM, INC.-VER202102-000642

PATIENT

DRUGS (3)
  1. AMOXICILLIN?CLAVULANIC [Concomitant]
     Route: 064
  2. HYDROCODONE AND ACETAMINOPHEN [Suspect]
     Active Substance: ACETAMINOPHEN\HYDROCODONE
     Route: 064
  3. BUSCAPINA COMPOSITUM [Concomitant]
     Active Substance: BUTYLSCOPOLAMINE BROMIDE\METAMIZOLE SODIUM
     Route: 064

REACTIONS (2)
  - Foetal exposure during pregnancy [Recovered/Resolved]
  - Ductus arteriosus premature closure [Recovered/Resolved]
